FAERS Safety Report 17267400 (Version 1)
Quarter: 2020Q1

REPORT INFORMATION
  Report Type: Spontaneous
  Country: US (occurrence: US)
  Receive Date: 20200114
  Receipt Date: 20200114
  Transmission Date: 20200409
  Serious: No
  Sender: FDA-Public Use
  Company Number: US-SA-2020SA005034

PATIENT
  Age: 29 Year
  Sex: Female

DRUGS (8)
  1. CLOBETASOL [Concomitant]
     Active Substance: CLOBETASOL
  2. OLOPATADINE. [Concomitant]
     Active Substance: OLOPATADINE
  3. BENZONATATE. [Concomitant]
     Active Substance: BENZONATATE
  4. TACROLIMUS. [Concomitant]
     Active Substance: TACROLIMUS
  5. MYCOPHENOLATE [Concomitant]
     Active Substance: MYCOPHENOLIC ACID
  6. AZITHROMYCIN ANHYDROUS. [Concomitant]
     Active Substance: AZITHROMYCIN ANHYDROUS
  7. METHYLPRED [Concomitant]
     Active Substance: METHYLPREDNISOLONE
  8. DUPIXENT [Suspect]
     Active Substance: DUPILUMAB
     Indication: DERMATITIS ATOPIC
     Dosage: 300 MG, QOW
     Route: 058
     Dates: start: 20191121

REACTIONS (1)
  - Dermatitis atopic [Recovered/Resolved]

NARRATIVE: CASE EVENT DATE: 201911
